FAERS Safety Report 9993142 (Version 3)
Quarter: 2014Q2

REPORT INFORMATION
  Report Type: Spontaneous
  Country: JP (occurrence: JP)
  Receive Date: 20140310
  Receipt Date: 20140501
  Transmission Date: 20141212
  Serious: Yes (Hospitalization)
  Sender: FDA-Public Use
  Company Number: JP-AMGEN-JPNSP2014016432

PATIENT
  Age: 77 Year
  Sex: Female

DRUGS (6)
  1. VECTIBIX [Suspect]
     Indication: COLON CANCER
     Dosage: 400 MG, Q2WK
     Route: 041
     Dates: start: 201402, end: 201402
  2. MINOMYCIN [Concomitant]
     Dosage: UNK
     Route: 065
  3. MAGMITT [Concomitant]
     Dosage: UNK
     Route: 048
  4. HIRUDOID                           /00723701/ [Concomitant]
     Dosage: UNK
     Route: 062
  5. MYSER                              /01249201/ [Concomitant]
     Dosage: UNK
     Route: 062
  6. LOCOID [Concomitant]
     Dosage: UNK
     Route: 062

REACTIONS (1)
  - Skin disorder [Not Recovered/Not Resolved]
